FAERS Safety Report 5005139-8 (Version None)
Quarter: 2006Q2

REPORT INFORMATION
  Report Type: 
  Country: None (occurrence: None)
  Receive Date: 20060518
  Receipt Date: 20060502
  Transmission Date: 20061013
  Serious: Yes (Other)
  Sender: FDA-Public Use
  Company Number: IT-AVENTIS-200614658GDDC

PATIENT
  Age: 32 Year
  Sex: Male

DRUGS (2)
  1. KETEK [Suspect]
     Indication: SKIN INFECTION
     Route: 048
     Dates: start: 20060309, end: 20060309
  2. KETEK [Suspect]
     Route: 048
     Dates: start: 20060310, end: 20060310

REACTIONS (1)
  - AMAUROSIS FUGAX [None]
